FAERS Safety Report 5676689-6 (Version None)
Quarter: 2008Q2

REPORT INFORMATION
  Report Type: 
  Country: None (occurrence: None)
  Receive Date: 20080228
  Receipt Date: 20071124
  Transmission Date: 20081010
  Serious: Yes (Hospitalization)
  Sender: FDA-Public Use
  Company Number: 2007BH008101

PATIENT
  Age: 43 Year
  Sex: Female
  Weight: 102.9665 kg

DRUGS (4)
  1. GAMMAGARD LIQUID [Suspect]
     Indication: MYASTHENIA GRAVIS
     Dosage: 40 GM;EVERY 4 WK;IV
     Route: 042
     Dates: start: 20061113, end: 20061213
  2. GAMMAGARD LIQUID [Suspect]
     Indication: OFF LABEL USE
     Dosage: 40 GM;EVERY 4 WK;IV
     Route: 042
     Dates: start: 20061113, end: 20061213
  3. BENADRYL [Concomitant]
  4. TYLENOL [Concomitant]

REACTIONS (1)
  - MENINGITIS ASEPTIC [None]
